FAERS Safety Report 5060120-8 (Version None)
Quarter: 2006Q3

REPORT INFORMATION
  Report Type: 
  Country: None (occurrence: None)
  Receive Date: 20060719
  Receipt Date: 20060712
  Transmission Date: 20061208
  Serious: No
  Sender: FDA-Public Use
  Company Number: 2006-145368-NL

PATIENT
  Sex: Female

DRUGS (2)
  1. MIRTAZAPINE [Suspect]
     Dosage: DF
  2. QUETIAPINE FUMARATE [Suspect]
     Dosage: DF

REACTIONS (4)
  - MUSCLE TWITCHING [None]
  - PALLOR [None]
  - RESTLESSNESS [None]
  - SYNCOPE [None]
